FAERS Safety Report 18842458 (Version 1)
Quarter: 2021Q1

REPORT INFORMATION
  Report Type: Spontaneous
  Country: US (occurrence: US)
  Receive Date: 20210204
  Receipt Date: 20210204
  Transmission Date: 20210419
  Serious: Yes (Hospitalization)
  Sender: FDA-Public Use
  Company Number: US-EMCURE PHARMACEUTICALS LTD-2021-EPL-000373

PATIENT
  Age: 5 Decade
  Sex: Female

DRUGS (2)
  1. NARATRIPTAN HYDROCHLORIDE. [Suspect]
     Active Substance: NARATRIPTAN HYDROCHLORIDE
     Dosage: TOOK TWICE THE AMOUNT OF HER PROSCRIBED DOSAGE
  2. NARATRIPTAN HYDROCHLORIDE. [Suspect]
     Active Substance: NARATRIPTAN HYDROCHLORIDE
     Indication: MIGRAINE
     Dosage: 2.5 MILLIGRAM AS NEEDED

REACTIONS (2)
  - Overdose [Unknown]
  - Spinal cord infarction [Recovering/Resolving]
